FAERS Safety Report 7824278-7 (Version None)
Quarter: 2011Q4

REPORT INFORMATION
  Report Type: 
  Country: None (occurrence: None)
  Receive Date: 20111019
  Receipt Date: 20111010
  Transmission Date: 20120403
  Serious: Yes (Hospitalization, Other)
  Sender: FDA-Public Use
  Company Number: US-NOVOPROD-337013

PATIENT
  Age: 64 Year
  Sex: Female
  Weight: 136.5 kg

DRUGS (1)
  1. NOVOSEVEN RT [Suspect]
     Indication: ACQUIRED HAEMOPHILIA
     Dosage: 16000 MCG, Q3HOURS
     Route: 042
     Dates: start: 20111007, end: 20111010

REACTIONS (2)
  - DRUG INEFFECTIVE [None]
  - INTERNATIONAL NORMALISED RATIO INCREASED [None]
